FAERS Safety Report 7884825-6 (Version None)
Quarter: 2011Q4

REPORT INFORMATION
  Report Type: 
  Country: None (occurrence: None)
  Receive Date: 20111102
  Receipt Date: 20111026
  Transmission Date: 20120403
  Serious: Yes (Hospitalization)
  Sender: FDA-Public Use
  Company Number: PHHY2011AU95320

PATIENT
  Sex: Female

DRUGS (1)
  1. ZOLEDRONOC ACID [Suspect]
     Dosage: 5 MG, UNK
     Route: 042
     Dates: start: 20101109

REACTIONS (6)
  - LIMB DISCOMFORT [None]
  - DYSPNOEA [None]
  - PAIN [None]
  - PARAESTHESIA ORAL [None]
  - MUSCLE SPASMS [None]
  - WEIGHT DECREASED [None]
